FAERS Safety Report 6252949-5 (Version None)
Quarter: 2009Q3

REPORT INFORMATION
  Report Type: 
  Country: None (occurrence: None)
  Receive Date: 20090701
  Receipt Date: 20090624
  Transmission Date: 20100115
  Serious: Yes (Hospitalization)
  Sender: FDA-Public Use
  Company Number: B0520403A

PATIENT
  Age: 15 Year
  Sex: Male

DRUGS (12)
  1. VALACYCLOVIR HCL [Suspect]
     Indication: HERPES ZOSTER
     Dosage: 3G PER DAY
     Route: 048
     Dates: start: 20080423
  2. ACYCLOVIR [Concomitant]
     Indication: HERPES ZOSTER
  3. PREDNISOLONE [Concomitant]
     Indication: ANTI-GLOMERULAR BASEMENT MEMBRANE ANTIBODY
     Dosage: 10MG PER DAY
     Route: 048
  4. MYCOPHENOLATE MOFETIL [Concomitant]
     Indication: ANTI-GLOMERULAR BASEMENT MEMBRANE ANTIBODY
     Dosage: 500MG PER DAY
     Route: 048
     Dates: end: 20080423
  5. ALFACALCIDOL [Concomitant]
     Indication: ANTI-GLOMERULAR BASEMENT MEMBRANE ANTIBODY
     Route: 048
  6. FOLIC ACID [Concomitant]
     Indication: ANTI-GLOMERULAR BASEMENT MEMBRANE ANTIBODY
     Route: 048
  7. CYCLOPHOSPHAMIDE [Concomitant]
     Dates: start: 20080312
  8. ATENOLOL [Concomitant]
     Dosage: 25MG PER DAY
     Dates: end: 20080416
  9. LOSARTAN POTASSIUM [Concomitant]
     Indication: HYPERTENSION
     Dosage: 75MG PER DAY
  10. EPOETIN ALFA [Concomitant]
  11. CALCIUM CARBONATE [Concomitant]
  12. OMEPRAZOLE [Concomitant]
     Dosage: 40MG PER DAY

REACTIONS (3)
  - ABNORMAL BEHAVIOUR [None]
  - OVERDOSE [None]
  - VISUAL IMPAIRMENT [None]
